FAERS Safety Report 16910547 (Version 1)
Quarter: 2019Q4

REPORT INFORMATION
  Report Type: Report from Study
  Country: US (occurrence: US)
  Receive Date: 20191011
  Receipt Date: 20191011
  Transmission Date: 20200122
  Serious: Yes (Other)
  Sender: FDA-Public Use
  Company Number: US-JAZZ-2019-US-009654

PATIENT
  Age: 61 Year
  Sex: Female

DRUGS (22)
  1. VITAMIN D2 [Concomitant]
     Active Substance: ERGOCALCIFEROL
  2. AZELASTINE. [Concomitant]
     Active Substance: AZELASTINE HYDROCHLORIDE
  3. BREO ELLIPTA [Concomitant]
     Active Substance: FLUTICASONE FUROATE\VILANTEROL TRIFENATATE
  4. METRONIDAZOLE. [Concomitant]
     Active Substance: METRONIDAZOLE
  5. XYREM [Suspect]
     Active Substance: SODIUM OXYBATE
     Indication: NARCOLEPSY
     Dosage: 2.25 G, BID
     Route: 048
     Dates: start: 201907, end: 201907
  6. IBUPROFEN. [Concomitant]
     Active Substance: IBUPROFEN
  7. LISINOPRIL. [Concomitant]
     Active Substance: LISINOPRIL
  8. METOPROLOL TARTRATE. [Concomitant]
     Active Substance: METOPROLOL TARTRATE
  9. PROAIR HFA [Concomitant]
     Active Substance: ALBUTEROL SULFATE
  10. XYREM [Suspect]
     Active Substance: SODIUM OXYBATE
     Dosage: 4.5 G, BID
     Route: 048
     Dates: start: 2019, end: 20190820
  11. ADDERALL [Concomitant]
     Active Substance: AMPHETAMINE ASPARTATE\AMPHETAMINE SULFATE\DEXTROAMPHETAMINE SACCHARATE\DEXTROAMPHETAMINE SULFATE
  12. ASPIRIN EC [Concomitant]
     Active Substance: ASPIRIN
  13. NUVIGIL [Concomitant]
     Active Substance: ARMODAFINIL
  14. SUMATRIPTAN SUCCINATE. [Concomitant]
     Active Substance: SUMATRIPTAN SUCCINATE
  15. ZOLOFT [Concomitant]
     Active Substance: SERTRALINE HYDROCHLORIDE
  16. XYREM [Suspect]
     Active Substance: SODIUM OXYBATE
     Indication: CATAPLEXY
     Dosage: 4.5 G, BID
     Route: 048
     Dates: start: 20190730, end: 20190731
  17. ATORVASTATIN [Concomitant]
     Active Substance: ATORVASTATIN
  18. TROKENDI XR [Concomitant]
     Active Substance: TOPIRAMATE
  19. CETIRIZINE HYDROCHLORIDE. [Concomitant]
     Active Substance: CETIRIZINE HYDROCHLORIDE
  20. XYREM [Suspect]
     Active Substance: SODIUM OXYBATE
     Dosage: 4 G
     Route: 048
     Dates: start: 20190801, end: 2019
  21. MINOCYCLINE HCL [Concomitant]
     Active Substance: MINOCYCLINE HYDROCHLORIDE
  22. MONTELUKAST SODIUM. [Concomitant]
     Active Substance: MONTELUKAST SODIUM

REACTIONS (15)
  - Disorientation [Not Recovered/Not Resolved]
  - Therapeutic response unexpected [Unknown]
  - Back pain [Unknown]
  - Wrong technique in product usage process [Unknown]
  - Condition aggravated [Recovering/Resolving]
  - Dizziness [Unknown]
  - Rosacea [Not Recovered/Not Resolved]
  - Snoring [Unknown]
  - Feeling drunk [Not Recovered/Not Resolved]
  - Condition aggravated [Unknown]
  - Pre-existing condition improved [Unknown]
  - Sciatica [Unknown]
  - Blood pressure increased [Recovering/Resolving]
  - Anxiety [Unknown]
  - Nightmare [Unknown]

NARRATIVE: CASE EVENT DATE: 2019
